FAERS Safety Report 7741378-0 (Version None)
Quarter: 2011Q3

REPORT INFORMATION
  Report Type: 
  Country: None (occurrence: None)
  Receive Date: 20110909
  Receipt Date: 20110907
  Transmission Date: 20111222
  Serious: Yes (Death)
  Sender: FDA-Public Use
  Company Number: PHHY2011PL79269

PATIENT
  Sex: Female

DRUGS (2)
  1. FASLODEX [Concomitant]
     Dates: start: 20070118, end: 20070709
  2. LETROZOLE [Suspect]
     Indication: BREAST CANCER
     Dates: start: 20070709

REACTIONS (1)
  - DEATH [None]
